FAERS Safety Report 23445600 (Version 1)
Quarter: 2024Q1

REPORT INFORMATION
  Report Type: Spontaneous
  Country: IN (occurrence: IN)
  Receive Date: 20240126
  Receipt Date: 20240126
  Transmission Date: 20240409
  Serious: Yes (Hospitalization, Other)
  Sender: FDA-Public Use
  Company Number: IN-EPICPHARMA-IN-2024EPCLIT00137

PATIENT
  Age: 34 Year
  Sex: Male

DRUGS (2)
  1. HALOPERIDOL LACTATE [Suspect]
     Active Substance: HALOPERIDOL LACTATE
     Indication: Mental disorder
     Route: 065
  2. LORAZEPAM [Suspect]
     Active Substance: LORAZEPAM
     Indication: Mental disorder
     Route: 065

REACTIONS (2)
  - Renal tubular injury [Recovered/Resolved]
  - Rhabdomyolysis [Recovered/Resolved]
